FAERS Safety Report 5412489-X (Version None)
Quarter: 2007Q3

REPORT INFORMATION
  Report Type: 
  Country: None (occurrence: None)
  Receive Date: 20070713
  Receipt Date: 20070315
  Transmission Date: 20080115
  Serious: Yes (Hospitalization)
  Sender: FDA-Public Use
  Company Number: US-JNJFOC-20061001213

PATIENT
  Age: 24 Year
  Sex: Female
  Weight: 97.5234 kg

DRUGS (1)
  1. ORTHO EVRA [Suspect]
     Indication: CONTRACEPTION
     Dosage: FIRST PRESCRIBED 01-JUL-2003 LAST PRESCRIBED 8-JUL-2004 PATCH APPLIED 9-OCT-2004
     Dates: start: 20030701

REACTIONS (2)
  - DEEP VEIN THROMBOSIS [None]
  - PULMONARY EMBOLISM [None]
